FAERS Safety Report 10222194 (Version 1)
Quarter: 2014Q2

REPORT INFORMATION
  Report Type: Report from Study
  Country: JP (occurrence: JP)
  Receive Date: 20140606
  Receipt Date: 20140606
  Transmission Date: 20141212
  Serious: Yes (Death)
  Sender: FDA-Public Use
  Company Number: JP-BAXTER-2014BAX028319

PATIENT
  Sex: 0

DRUGS (16)
  1. ENDOXAN 1G [Suspect]
     Indication: ACUTE LEUKAEMIA
     Dosage: DAY 3
     Route: 065
  2. ENDOXAN 1G [Suspect]
     Indication: MYELODYSPLASTIC SYNDROME
     Dosage: DAY 3 AND 4
     Route: 065
  3. CYTARABINE [Suspect]
     Indication: ACUTE LEUKAEMIA
     Dosage: 2.0 G/M2 ON DAY 11 AND -10
     Route: 065
  4. CYTARABINE [Suspect]
     Indication: MYELODYSPLASTIC SYNDROME
  5. THYMOGLOBULIN [Suspect]
     Indication: ACUTE LEUKAEMIA
     Dosage: DAYS -8 AND -7
     Route: 065
  6. THYMOGLOBULIN [Suspect]
     Indication: ACUTE LEUKAEMIA
  7. FLUDARABINE [Suspect]
     Indication: ACUTE LEUKAEMIA
     Route: 065
  8. FLUDARABINE [Suspect]
     Indication: MYELODYSPLASTIC SYNDROME
  9. BUSULFAN [Suspect]
     Indication: ACUTE LEUKAEMIA
     Dosage: DAYS -6 TO -3
     Route: 042
  10. BUSULFAN [Suspect]
     Indication: ACUTE LEUKAEMIA
  11. MELPHALAN [Suspect]
     Indication: ACUTE LEUKAEMIA
     Dosage: ON DAY -2
     Route: 065
  12. MELPHALAN [Suspect]
     Indication: ACUTE LEUKAEMIA
  13. TACROLIMUS [Suspect]
     Indication: ACUTE LEUKAEMIA
     Route: 065
  14. TACROLIMUS [Suspect]
     Indication: MYELODYSPLASTIC SYNDROME
  15. MYCOPHENOLATE MOFETIL [Suspect]
     Indication: ACUTE LEUKAEMIA
     Route: 048
  16. MYCOPHENOLATE MOFETIL [Suspect]
     Indication: MYELODYSPLASTIC SYNDROME

REACTIONS (1)
  - Disease progression [Fatal]
